FAERS Safety Report 11682417 (Version 1)
Quarter: 2015Q4

REPORT INFORMATION
  Report Type: Spontaneous
  Country: MX (occurrence: MX)
  Receive Date: 20151029
  Receipt Date: 20151029
  Transmission Date: 20160304
  Serious: Yes (Hospitalization)
  Sender: FDA-Public Use
  Company Number: MX-TEVA-603163ISR

PATIENT
  Age: 80 Year
  Sex: Female

DRUGS (4)
  1. AZILECT [Suspect]
     Active Substance: RASAGILINE MESYLATE
     Dates: start: 20141201, end: 20141215
  2. DIMEFUR [Concomitant]
     Route: 065
  3. BEDOYECTA [Concomitant]
  4. SIFROL [Concomitant]
     Active Substance: PRAMIPEXOLE
     Route: 065

REACTIONS (3)
  - Blood pressure fluctuation [Unknown]
  - Epilepsy [Unknown]
  - Blood glucose fluctuation [Unknown]

NARRATIVE: CASE EVENT DATE: 20141215
